FAERS Safety Report 4710165-X (Version None)
Quarter: 2005Q3

REPORT INFORMATION
  Report Type: 
  Country: None (occurrence: None)
  Receive Date: 20050708
  Receipt Date: 20050708
  Transmission Date: 20060218
  Serious: Yes (Other)
  Sender: FDA-Public Use
  Company Number: None

PATIENT
  Age: 72 Year
  Sex: Female
  Weight: 68.0396 kg

DRUGS (1)
  1. MOBIC [Suspect]

REACTIONS (3)
  - CHEST DISCOMFORT [None]
  - HEART RATE IRREGULAR [None]
  - PAIN [None]
